FAERS Safety Report 14713969 (Version 5)
Quarter: 2018Q2

REPORT INFORMATION
  Report Type: Spontaneous
  Country: US (occurrence: US)
  Receive Date: 20180404
  Receipt Date: 20180601
  Transmission Date: 20180711
  Serious: Yes (Other)
  Sender: FDA-Public Use
  Company Number: US-CELGENEUS-USA-20180310991

PATIENT
  Sex: Male
  Weight: 83.99 kg

DRUGS (1)
  1. REVLIMID [Suspect]
     Active Substance: LENALIDOMIDE
     Indication: PLASMA CELL MYELOMA
     Dosage: 10 MILLIGRAM
     Route: 048
     Dates: start: 201711

REACTIONS (8)
  - Asthenia [Unknown]
  - Rash pruritic [Recovering/Resolving]
  - Hypophagia [Unknown]
  - Peripheral artery occlusion [Unknown]
  - Renal failure [Unknown]
  - Dysgeusia [Unknown]
  - Platelet count decreased [Unknown]
  - Abdominal pain upper [Unknown]
